FAERS Safety Report 12633018 (Version 2)
Quarter: 2016Q3

REPORT INFORMATION
  Report Type: Spontaneous
  Country: US (occurrence: US)
  Receive Date: 20160808
  Receipt Date: 20160808
  Transmission Date: 20161109
  Serious: No
  Sender: FDA-Public Use
  Company Number: US-BEH-2016058145

PATIENT
  Sex: Female
  Weight: 63 kg

DRUGS (24)
  1. ADVAIR HFA [Concomitant]
     Active Substance: FLUTICASONE PROPIONATE\SALMETEROL XINAFOATE
  2. NYSTATIN. [Concomitant]
     Active Substance: NYSTATIN
  3. HIZENTRA [Suspect]
     Active Substance: HUMAN IMMUNOGLOBULIN G
     Indication: HYPOGAMMAGLOBULINAEMIA
     Route: 058
  4. DIPHENHYDRAMINE. [Concomitant]
     Active Substance: DIPHENHYDRAMINE
  5. EPIPEN [Concomitant]
     Active Substance: EPINEPHRINE
  6. SUMATRIPTAN. [Concomitant]
     Active Substance: SUMATRIPTAN
  7. IPRATROPIUM [Concomitant]
     Active Substance: IPRATROPIUM
  8. CLONIDINE. [Concomitant]
     Active Substance: CLONIDINE
  9. LIDOCAINE. [Concomitant]
     Active Substance: LIDOCAINE
  10. THEOCHRON [Concomitant]
     Active Substance: THEOPHYLLINE ANHYDROUS
  11. MUCINEX [Concomitant]
     Active Substance: GUAIFENESIN
  12. BYSTOLIC [Concomitant]
     Active Substance: NEBIVOLOL HYDROCHLORIDE
  13. CYPROHEPTADINE. [Concomitant]
     Active Substance: CYPROHEPTADINE
  14. IBUPROFEN. [Concomitant]
     Active Substance: IBUPROFEN
  15. COLCRYS [Concomitant]
     Active Substance: COLCHICINE
  16. HYOSCYMANINE [Concomitant]
  17. LYRICA [Concomitant]
     Active Substance: PREGABALIN
  18. ACETAMINOPHEN. [Concomitant]
     Active Substance: ACETAMINOPHEN
  19. HYDROCORTISONE. [Concomitant]
     Active Substance: HYDROCORTISONE
  20. BUDESONIDE. [Concomitant]
     Active Substance: BUDESONIDE
  21. BRIMONIDINE [Concomitant]
     Active Substance: BRIMONIDINE TARTRATE
  22. XOPENEX [Concomitant]
     Active Substance: LEVALBUTEROL HYDROCHLORIDE
  23. NORCO [Concomitant]
     Active Substance: ACETAMINOPHEN\HYDROCODONE BITARTRATE
  24. AMITRIPTYLINE [Concomitant]
     Active Substance: AMITRIPTYLINE

REACTIONS (2)
  - Otorrhoea [Unknown]
  - Pruritus [Unknown]
